APPROVED DRUG PRODUCT: LUMRYZ
Active Ingredient: SODIUM OXYBATE
Strength: 4.5GM/PACKET
Dosage Form/Route: FOR SUSPENSION, EXTENDED RELEASE;ORAL
Application: N214755 | Product #001
Applicant: AVADEL CNS PHARMACEUTICALS LLC
Approved: May 1, 2023 | RLD: Yes | RS: Yes | Type: RX

PATENTS:
Patent 12303478 | Expires: Jul 21, 2037
Patent 11602513 | Expires: Jul 21, 2037
Patent 11602512 | Expires: Jul 21, 2037
Patent 11583510 | Expires: Feb 7, 2042
Patent 11400065 | Expires: Jul 21, 2037
Patent 11000498 | Expires: Jul 21, 2037
Patent 12128021 | Expires: Jul 21, 2037
Patent 11986451 | Expires: Jul 21, 2037
Patent 10952986 | Expires: Jul 21, 2037
Patent 11779557 | Expires: Mar 16, 2042
Patent 12097176 | Expires: Jul 21, 2037
Patent 11896572 | Expires: Jul 21, 2037
Patent 10272062 | Expires: Jul 21, 2037
Patent 11504347 | Expires: Jul 21, 2037
Patent 12109186 | Expires: Jul 21, 2037
Patent 11839597 | Expires: Jul 21, 2037
Patent 12097175 | Expires: Jul 21, 2037
Patent 12115144 | Expires: Jul 21, 2037
Patent 12144793 | Expires: Jul 21, 2037
Patent 11052061 | Expires: Jul 21, 2037
Patent 12226377 | Expires: Jul 21, 2037
Patent 10925844 | Expires: Feb 28, 2040
Patent 12115143 | Expires: Jul 21, 2037
Patent 12115142 | Expires: Jul 21, 2037
Patent 11065224 | Expires: Jul 21, 2037
Patent 12138239 | Expires: Jul 21, 2037
Patent 10973795 | Expires: Jul 21, 2037
Patent 11766418 | Expires: Jul 21, 2037
Patent 12115145 | Expires: Jul 21, 2037
Patent 10736866 | Expires: Jul 21, 2037

EXCLUSIVITY:
Code: NP | Date: May 1, 2026
Code: ODE-431 | Date: May 1, 2030
Code: ODE-494 | Date: Oct 16, 2031